FAERS Safety Report 9884957 (Version 1)
Quarter: 2014Q1

REPORT INFORMATION
  Report Type: Spontaneous
  Country: US (occurrence: US)
  Receive Date: 20140210
  Receipt Date: 20140210
  Transmission Date: 20141002
  Serious: No
  Sender: FDA-Public Use
  Company Number: US-009507513-1401USA014331

PATIENT
  Sex: 0

DRUGS (2)
  1. FOSAMAX [Suspect]
     Dosage: UNK
     Route: 048
     Dates: start: 20090428, end: 201211
  2. ALENDRONATE SODIUM [Suspect]
     Dosage: UNK
     Dates: start: 20090428, end: 201211

REACTIONS (2)
  - Fracture [Unknown]
  - Fracture [Unknown]
